FAERS Safety Report 5999335-0 (Version None)
Quarter: 2008Q4

REPORT INFORMATION
  Report Type: 
  Country: None (occurrence: None)
  Receive Date: 20081211
  Receipt Date: 20081201
  Transmission Date: 20090506
  Serious: Yes (Hospitalization, Disabling, Other)
  Sender: FDA-Public Use
  Company Number: TPA2008A02070

PATIENT
  Age: 57 Year
  Sex: Male
  Weight: 106.5953 kg

DRUGS (9)
  1. ACTOS [Suspect]
     Indication: DIABETES MELLITUS
     Dosage: 15 MG, 1 IN 1 D, PER ORAL
     Route: 048
  2. LANTUS [Concomitant]
  3. DILTIAZEM [Concomitant]
  4. SIMVASTATIN [Concomitant]
  5. CLONIDINE [Concomitant]
  6. KLOR-CON [Concomitant]
  7. GLYBURIDE [Concomitant]
  8. ASPIRIN [Concomitant]
  9. LASIX [Concomitant]

REACTIONS (5)
  - BLOOD PRESSURE INCREASED [None]
  - CORONARY ARTERY BYPASS [None]
  - IMPAIRED WORK ABILITY [None]
  - MYOCARDIAL INFARCTION [None]
  - PLEURAL EFFUSION [None]
